FAERS Safety Report 8764939 (Version 1)
Quarter: 2012Q4

REPORT INFORMATION
  Report Type: 
  Country: US (occurrence: US)
  Receive Date: 20120902
  Receipt Date: 20120902
  Transmission Date: 20130627
  Serious: Yes (Hospitalization)
  Sender: FDA-Public Use
  Company Number: US-MYLANLABS-2012S1017572

PATIENT
  Age: 27 Year
  Sex: Male
  Weight: 70 kg

DRUGS (11)
  1. ROCURONIUM BROMIDE [Suspect]
     Dosage: 8 microg/kg/min and titrated to achieve a train-of-four score of 2
  2. PROPOFOL [Concomitant]
     Dosage: Titrated to achieve a bispectral index score of 40-60
  3. LORAZEPAM [Concomitant]
     Route: 065
  4. FENTANYL [Concomitant]
     Route: 041
  5. METHYLPREDNISOLONE [Concomitant]
     Route: 042
  6. INSULIN [Concomitant]
     Dosage: Titrated to achieve a blood glucose concentration of 90-130 mg/dL
  7. DILTIAZEM [Concomitant]
     Dosage: 5 mg/hour
     Route: 042
  8. FAMOTIDINE [Concomitant]
     Route: 042
  9. ENOXAPARIN SODIUM [Concomitant]
     Route: 058
  10. PARACETAMOL [Concomitant]
     Dosage: As needed
  11. INDOMETACIN [Concomitant]
     Dosage: As needed

REACTIONS (1)
  - Hyperthermia malignant [Recovered/Resolved]
